FAERS Safety Report 7043801-6 (Version None)
Quarter: 2010Q4

REPORT INFORMATION
  Report Type: 
  Country: None (occurrence: None)
  Receive Date: 20101008
  Receipt Date: 20101008
  Transmission Date: 20110411
  Serious: No
  Sender: FDA-Public Use
  Company Number: None

PATIENT
  Sex: Male

DRUGS (1)
  1. OXYCONTIN [Suspect]
     Indication: PAIN
     Dosage: 60 MG 1 TAB T.I.D. PO
     Route: 048
     Dates: start: 20100908, end: 20101001

REACTIONS (1)
  - DRUG EFFECT DELAYED [None]
